FAERS Safety Report 24156395 (Version 1)
Quarter: 2024Q3

REPORT INFORMATION
  Report Type: Spontaneous
  Country: IN (occurrence: IN)
  Receive Date: 20240731
  Receipt Date: 20240731
  Transmission Date: 20241017
  Serious: Yes (Other)
  Sender: PFIZER
  Company Number: IN-PFIZER INC-PV202400072464

PATIENT
  Age: 74 Year
  Sex: Female

DRUGS (5)
  1. CRIZOTINIB [Suspect]
     Active Substance: CRIZOTINIB
     Dosage: 250 MG, 2X/DAY
     Dates: start: 202311
  2. NERVEHEAL [Concomitant]
     Dosage: UNK, 2X/DAY
  3. DEXORANGE [Concomitant]
     Dosage: UNK, 2X/DAY
  4. THREPTIN [Concomitant]
     Dosage: UNK, 4X/DAY
  5. NUTROLIN B PLUS [Concomitant]
     Dosage: UNK UNK, 1X/DAY

REACTIONS (3)
  - Anaemia [Unknown]
  - Pyrexia [Unknown]
  - Haemoglobin decreased [Unknown]
